FAERS Safety Report 12522361 (Version 1)
Quarter: 2016Q3

REPORT INFORMATION
  Report Type: Spontaneous
  Country: US (occurrence: US)
  Receive Date: 20160701
  Receipt Date: 20160701
  Transmission Date: 20161109
  Serious: Yes (Other)
  Sender: FDA-Public Use
  Company Number: US-TEVA-672301USA

PATIENT
  Age: 36 Year
  Sex: Female

DRUGS (1)
  1. ZECUITY [Suspect]
     Active Substance: SUMATRIPTAN SUCCINATE
     Route: 062
     Dates: start: 201604

REACTIONS (8)
  - Application site burn [Unknown]
  - Application site pain [Recovered/Resolved]
  - Wrong technique in product usage process [Unknown]
  - Application site dryness [Unknown]
  - Drug prescribing error [Unknown]
  - Application site erythema [Unknown]
  - Application site urticaria [Unknown]
  - Application site exfoliation [Unknown]

NARRATIVE: CASE EVENT DATE: 201604
